FAERS Safety Report 6613829-6 (Version None)
Quarter: 2010Q1

REPORT INFORMATION
  Report Type: 
  Country: None (occurrence: None)
  Receive Date: 20100304
  Receipt Date: 20100303
  Transmission Date: 20100710
  Serious: Yes (Death)
  Sender: FDA-Public Use
  Company Number: US-CEPHALON-2010001215

PATIENT
  Sex: Male
  Weight: 82 kg

DRUGS (2)
  1. FENTANYL CITRATE [Suspect]
     Indication: OESOPHAGEAL CANCER METASTATIC
     Route: 002
     Dates: start: 20091001, end: 20091125
  2. MORPHINE [Concomitant]
     Indication: OESOPHAGEAL CANCER METASTATIC
     Route: 048
     Dates: start: 20090101, end: 20091125

REACTIONS (1)
  - OESOPHAGEAL CANCER METASTATIC [None]
